FAERS Safety Report 6911314-5 (Version None)
Quarter: 2010Q3

REPORT INFORMATION
  Report Type: 
  Country: None (occurrence: None)
  Receive Date: 20100806
  Receipt Date: 20100728
  Transmission Date: 20110219
  Serious: Yes (Other)
  Sender: FDA-Public Use
  Company Number: JP-JNJFOC-20100800734

PATIENT
  Sex: Female
  Weight: 53 kg

DRUGS (2)
  1. DOXIL [Suspect]
     Indication: ADENOCARCINOMA OF THE CERVIX
     Dosage: CYCLE 1
     Route: 042
  2. DOXIL [Suspect]
     Dosage: CYCLE 2
     Route: 042

REACTIONS (2)
  - BLOOD PRESSURE DECREASED [None]
  - OFF LABEL USE [None]
